FAERS Safety Report 5578026-4 (Version None)
Quarter: 2007Q4

REPORT INFORMATION
  Report Type: 
  Country: None (occurrence: None)
  Receive Date: 20071231
  Receipt Date: 20071220
  Transmission Date: 20080405
  Serious: Yes (Hospitalization)
  Sender: FDA-Public Use
  Company Number: CH-AVENTIS-200716189EU

PATIENT
  Age: 24 Year
  Sex: Female

DRUGS (1)
  1. LASIX [Suspect]
     Route: 048
     Dates: end: 20071125

REACTIONS (3)
  - DRUG ABUSE [None]
  - HYPOKALAEMIA [None]
  - SYNCOPE [None]
